FAERS Safety Report 14436593 (Version 3)
Quarter: 2018Q1

REPORT INFORMATION
  Report Type: Spontaneous
  Country: NL (occurrence: NL)
  Receive Date: 20180125
  Receipt Date: 20180313
  Transmission Date: 20180509
  Serious: Yes (Other)
  Sender: FDA-Public Use
  Company Number: NL-AUROBINDO-AUR-APL-2018-002657

PATIENT
  Age: 76 Year
  Sex: Male
  Weight: 103 kg

DRUGS (1)
  1. MINOCYCLINE [Suspect]
     Active Substance: MINOCYCLINE\MINOCYCLINE HYDROCHLORIDE
     Indication: RESPIRATORY TRACT INFLAMMATION
     Dosage: UNK
     Route: 065
     Dates: start: 20171218, end: 20171222

REACTIONS (5)
  - Pruritus genital [Not Recovered/Not Resolved]
  - Penile haemorrhage [Recovering/Resolving]
  - Genital pain [Recovering/Resolving]
  - Epistaxis [Recovered/Resolved]
  - Oropharyngeal pain [Recovering/Resolving]

NARRATIVE: CASE EVENT DATE: 20171218
